FAERS Safety Report 9006995 (Version 1)
Quarter: 2013Q1

REPORT INFORMATION
  Report Type: Spontaneous
  Country: US (occurrence: US)
  Receive Date: 20130110
  Receipt Date: 20130110
  Transmission Date: 20140127
  Serious: Yes (Hospitalization)
  Sender: FDA-Public Use
  Company Number: US-B.I. PHARMACEUTICALS,INC./RIDGEFIELD-2013-BI-00139BP

PATIENT
  Sex: Female
  Weight: 56.7 kg

DRUGS (4)
  1. PRADAXA [Suspect]
     Indication: ANTICOAGULANT THERAPY
     Dosage: 150 MG
     Dates: start: 20121102
  2. LIPITOR [Suspect]
     Indication: BLOOD CHOLESTEROL INCREASED
     Dosage: 40 MG
  3. CORDARONE [Suspect]
     Indication: ATRIAL FIBRILLATION
     Dosage: 400 MG
     Dates: start: 20121102
  4. ALTACE [Suspect]
     Dosage: 5 MG
     Dates: start: 20121102

REACTIONS (2)
  - Atrial fibrillation [Unknown]
  - Dysgeusia [Not Recovered/Not Resolved]
